FAERS Safety Report 10717364 (Version 2)
Quarter: 2015Q1

REPORT INFORMATION
  Report Type: Report from Study
  Country: US (occurrence: US)
  Receive Date: 20150116
  Receipt Date: 20150226
  Transmission Date: 20150721
  Serious: Yes (Life-Threatening, Hospitalization)
  Sender: FDA-Public Use
  Company Number: US-JNJFOC-20150110002

PATIENT
  Age: 55 Year
  Sex: Female

DRUGS (4)
  1. CLONIDINE. [Suspect]
     Active Substance: CLONIDINE
     Indication: PRODUCT USED FOR UNKNOWN INDICATION
     Route: 065
  2. PERCOCET [Suspect]
     Active Substance: ACETAMINOPHEN\OXYCODONE HYDROCHLORIDE
     Indication: PRODUCT USED FOR UNKNOWN INDICATION
     Route: 065
  3. NUCYNTA ER [Suspect]
     Active Substance: TAPENTADOL HYDROCHLORIDE
     Indication: PRODUCT USED FOR UNKNOWN INDICATION
     Route: 048
  4. PREGABALIN. [Suspect]
     Active Substance: PREGABALIN
     Indication: PRODUCT USED FOR UNKNOWN INDICATION
     Route: 065

REACTIONS (13)
  - Toxicity to various agents [Recovered/Resolved]
  - Overdose [Recovered/Resolved]
  - Pneumonia aspiration [Unknown]
  - Blood sodium decreased [Unknown]
  - Respiratory distress [Recovered/Resolved]
  - Blood pressure decreased [Recovered/Resolved]
  - Oxygen saturation decreased [Recovering/Resolving]
  - Loss of consciousness [Recovered/Resolved]
  - Electrocardiogram QT prolonged [Unknown]
  - Suicide attempt [Unknown]
  - Bradycardia [Recovered/Resolved]
  - Renal failure [Recovered/Resolved]
  - Hyperkalaemia [Unknown]

NARRATIVE: CASE EVENT DATE: 20140817
